FAERS Safety Report 4980011-8 (Version None)
Quarter: 2006Q2

REPORT INFORMATION
  Report Type: 
  Country: None (occurrence: None)
  Receive Date: 20060421
  Receipt Date: 20050930
  Transmission Date: 20061013
  Serious: Yes (Hospitalization, Other)
  Sender: FDA-Public Use
  Company Number: US-MERCK-0510USA01194

PATIENT
  Age: 47 Year
  Sex: Female
  Weight: 75 kg

DRUGS (2)
  1. VIOXX [Suspect]
     Indication: BACK PAIN
     Route: 048
     Dates: start: 20000101
  2. VIOXX [Suspect]
     Indication: INTERVERTEBRAL DISC PROTRUSION
     Route: 048
     Dates: start: 20000101

REACTIONS (20)
  - ABDOMINAL PAIN UPPER [None]
  - ANGINA PECTORIS [None]
  - ANXIETY [None]
  - ARRHYTHMIA [None]
  - CARDIOVASCULAR DISORDER [None]
  - CEREBROVASCULAR ACCIDENT [None]
  - CHEST PAIN [None]
  - DEPRESSION [None]
  - EPIDURAL ANAESTHESIA [None]
  - FORAMEN MAGNUM STENOSIS [None]
  - LUMBAR RADICULOPATHY [None]
  - MYOCARDIAL INFARCTION [None]
  - NERVE ROOT INJURY [None]
  - NEUROPATHY PERIPHERAL [None]
  - ORGAN FAILURE [None]
  - PAIN [None]
  - PULMONARY EMBOLISM [None]
  - ROAD TRAFFIC ACCIDENT [None]
  - THROMBOSIS [None]
  - UPPER RESPIRATORY TRACT INFECTION [None]
